FAERS Safety Report 12046446 (Version 1)
Quarter: 2016Q1

REPORT INFORMATION
  Report Type: Spontaneous
  Country: US (occurrence: US)
  Receive Date: 20160208
  Receipt Date: 20160208
  Transmission Date: 20160526
  Serious: Yes (Hospitalization)
  Sender: FDA-Public Use
  Company Number: US-CTI_01860_2016

PATIENT
  Age: 1 Year
  Sex: Female

DRUGS (9)
  1. PULMOZYME [Concomitant]
     Active Substance: DORNASE ALFA
     Dosage: DF
  2. TRACLEER [Concomitant]
     Active Substance: BOSENTAN
     Dosage: DF
  3. BETHKIS [Suspect]
     Active Substance: TOBRAMYCIN
     Indication: PRODUCT USED FOR UNKNOWN INDICATION
     Route: 055
     Dates: start: 201511
  4. AZITHROMYCIN ANHYDROUS. [Concomitant]
     Active Substance: AZITHROMYCIN ANHYDROUS
     Dosage: DF
  5. NYSTATIN. [Concomitant]
     Active Substance: NYSTATIN
     Dosage: DF
  6. SILDENAFIL. [Concomitant]
     Active Substance: SILDENAFIL
     Dosage: DF
  7. FOLIC ACID. [Concomitant]
     Active Substance: FOLIC ACID
     Dosage: DF
  8. LASIX [Concomitant]
     Active Substance: FUROSEMIDE
     Dosage: DF
  9. ALDACTONE [Concomitant]
     Active Substance: SPIRONOLACTONE
     Dosage: DF

REACTIONS (2)
  - Product use issue [Not Recovered/Not Resolved]
  - Hospitalisation [Unknown]

NARRATIVE: CASE EVENT DATE: 201511
